FAERS Safety Report 18024090 (Version 1)
Quarter: 2020Q3

REPORT INFORMATION
  Report Type: Spontaneous
  Country: AU (occurrence: AU)
  Receive Date: 20200715
  Receipt Date: 20200715
  Transmission Date: 20201103
  Serious: Yes (Other)
  Sender: FDA-Public Use
  Company Number: AU-ALKEM LABORATORIES LIMITED-AU-ALKEM-2020-03569

PATIENT
  Sex: Female

DRUGS (4)
  1. GILENYA [Suspect]
     Active Substance: FINGOLIMOD HYDROCHLORIDE
     Indication: PRODUCT USED FOR UNKNOWN INDICATION
     Dosage: UNK
     Route: 065
  2. LYRICA [Concomitant]
     Active Substance: PREGABALIN
     Indication: PRODUCT USED FOR UNKNOWN INDICATION
     Dosage: UNK
     Route: 065
  3. AMLODIPINE BESYLATE. [Suspect]
     Active Substance: AMLODIPINE BESYLATE
     Indication: PRODUCT USED FOR UNKNOWN INDICATION
     Dosage: UNK
     Route: 065
  4. AVAPRO [Concomitant]
     Active Substance: IRBESARTAN
     Indication: PRODUCT USED FOR UNKNOWN INDICATION
     Dosage: UNK
     Route: 065

REACTIONS (32)
  - Urinary retention [Unknown]
  - Fatigue [Unknown]
  - Fall [Unknown]
  - Multiple sclerosis relapse [Unknown]
  - Concomitant disease aggravated [Unknown]
  - Memory impairment [Unknown]
  - Blood pressure increased [Unknown]
  - Condition aggravated [Unknown]
  - Erythema annulare [Unknown]
  - Headache [Unknown]
  - Mobility decreased [Unknown]
  - Chills [Unknown]
  - Asthenia [Unknown]
  - Insomnia [Unknown]
  - Limb discomfort [Unknown]
  - Eye haemorrhage [Unknown]
  - Balance disorder [Unknown]
  - Crying [Unknown]
  - White blood cell count decreased [Unknown]
  - Neuralgia [Unknown]
  - Limb injury [Unknown]
  - Muscle spasticity [Unknown]
  - Micturition urgency [Unknown]
  - Rash [Unknown]
  - Weight increased [Unknown]
  - Dizziness [Unknown]
  - Joint injury [Unknown]
  - Mood altered [Unknown]
  - Urticaria [Unknown]
  - Drug ineffective [Unknown]
  - Lymphopenia [Unknown]
  - Nasopharyngitis [Unknown]
